FAERS Safety Report 8209714-9 (Version None)
Quarter: 2012Q1

REPORT INFORMATION
  Report Type: 
  Country: None (occurrence: None)
  Receive Date: 20120228
  Receipt Date: 20110119
  Transmission Date: 20120608
  Serious: Yes (Hospitalization)
  Sender: FDA-Public Use
  Company Number: RB-20981-2011

PATIENT
  Sex: Female

DRUGS (3)
  1. XANAX [Concomitant]
  2. SUBUTEX [Suspect]
     Indication: DRUG DEPENDENCE
     Dosage: (6 MG SUBLINGUAL), (2 MG QD SUBLINGUAL)
     Route: 060
     Dates: start: 20101101, end: 20110101
  3. SUBUTEX [Suspect]
     Indication: DRUG DEPENDENCE
     Dosage: (6 MG SUBLINGUAL), (2 MG QD SUBLINGUAL)
     Route: 060
     Dates: start: 20110101

REACTIONS (1)
  - DRUG WITHDRAWAL SYNDROME [None]
